FAERS Safety Report 9345029 (Version 1)
Quarter: 2013Q2

REPORT INFORMATION
  Report Type: Spontaneous
  Country: CN (occurrence: CN)
  Receive Date: 20130612
  Receipt Date: 20130612
  Transmission Date: 20140414
  Serious: Yes (Hospitalization)
  Sender: FDA-Public Use
  Company Number: CN-JNJFOC-20130602687

PATIENT
  Age: 27 Year
  Sex: Female
  Weight: 68 kg

DRUGS (2)
  1. IBUPROFEN [Suspect]
     Indication: PYREXIA
     Route: 048
     Dates: start: 20121023, end: 20121023
  2. IBUPROFEN [Suspect]
     Indication: NASOPHARYNGITIS
     Route: 048
     Dates: start: 20121023, end: 20121023

REACTIONS (2)
  - Urticaria [Recovered/Resolved]
  - Vulvovaginal discomfort [Unknown]
